FAERS Safety Report 5394212-0 (Version None)
Quarter: 2007Q3

REPORT INFORMATION
  Report Type: 
  Country: None (occurrence: None)
  Receive Date: 20070723
  Receipt Date: 20070418
  Transmission Date: 20080115
  Serious: No
  Sender: FDA-Public Use
  Company Number: A0648028A

PATIENT
  Sex: Male

DRUGS (5)
  1. AVANDIA [Suspect]
     Route: 065
     Dates: start: 20030201, end: 20060101
  2. BYETTA [Suspect]
     Dosage: 5MCG TWICE PER DAY
     Route: 058
     Dates: start: 20050901
  3. JANUVIA [Concomitant]
  4. GLUCOTROL [Concomitant]
     Dates: end: 20070101
  5. GLUCOPHAGE [Concomitant]
     Dates: start: 20000101

REACTIONS (3)
  - BLOOD GLUCOSE ABNORMAL [None]
  - JOINT SWELLING [None]
  - RASH PRURITIC [None]
